FAERS Safety Report 8925236 (Version 2)
Quarter: 2012Q4

REPORT INFORMATION
  Report Type: Report from Study
  Country: US (occurrence: US)
  Receive Date: 20121126
  Receipt Date: 20121129
  Transmission Date: 20130627
  Serious: Yes (Death)
  Sender: FDA-Public Use
  Company Number: US-ROCHE-1159841

PATIENT
  Age: 50 Year
  Sex: Female

DRUGS (9)
  1. PEG-INTERFERON ALFA 2A [Suspect]
     Indication: HEPATITIS C
     Route: 058
     Dates: start: 20120702, end: 20121105
  2. RIBAVIRIN [Suspect]
     Indication: HEPATITIS C
     Route: 048
     Dates: start: 20120702, end: 20121105
  3. AMITRIPTYLINE [Concomitant]
     Indication: DEPRESSION
     Route: 048
     Dates: end: 20121109
  4. CITALOPRAM [Concomitant]
     Indication: ANXIETY
     Route: 048
     Dates: end: 20121109
  5. HYDROCHLOROTHIAZIDE [Concomitant]
     Indication: HYPERTENSION
     Route: 048
     Dates: end: 20121109
  6. LISINOPRIL [Concomitant]
     Indication: HYPERTENSION
  7. PAROXIL [Concomitant]
     Indication: DEPRESSION
     Route: 048
     Dates: end: 20121109
  8. TIZANIDINE [Concomitant]
     Route: 065
     Dates: end: 20121109
  9. LASIX [Concomitant]
     Indication: HYPERTENSION
     Route: 065

REACTIONS (3)
  - Gastrointestinal haemorrhage [Fatal]
  - Disseminated intravascular coagulation [Fatal]
  - Hepatic cirrhosis [Fatal]
